FAERS Safety Report 9767812 (Version 4)
Quarter: 2014Q3

REPORT INFORMATION
  Report Type: Spontaneous
  Country: US (occurrence: None)
  Receive Date: 20131213
  Receipt Date: 20140813
  Transmission Date: 20150326
  Serious: Yes (Hospitalization)
  Sender: FDA-Public Use
  Company Number: 152240

PATIENT
  Age: 70 Year
  Sex: Male
  Weight: 82 kg

DRUGS (1)
  1. LEUCOVORIN CALCIUM FOR INJ. 50MG - BEDFORD LABS, INC. [Suspect]
     Active Substance: LEUCOVORIN CALCIUM
     Indication: PANCREATIC CARCINOMA METASTATIC
     Dosage: CYCLICAL
     Route: 042
     Dates: start: 20130923, end: 20131106

REACTIONS (19)
  - Blood potassium decreased [None]
  - Syncope [None]
  - Orthostatic hypotension [None]
  - Diarrhoea [None]
  - Duodenal ulcer [None]
  - Hypokalaemia [None]
  - Neutrophil count decreased [None]
  - Malignant neoplasm progression [None]
  - Febrile neutropenia [None]
  - Autonomic neuropathy [None]
  - Thrombocytopenia [None]
  - Hiccups [None]
  - Culture urine positive [None]
  - Hypovolaemia [None]
  - Haemoglobin decreased [None]
  - Pancreatic carcinoma metastatic [None]
  - Hypotension [None]
  - Escherichia test positive [None]
  - Renal failure acute [None]

NARRATIVE: CASE EVENT DATE: 20131115
